FAERS Safety Report 19841815 (Version 5)
Quarter: 2021Q4

REPORT INFORMATION
  Report Type: Report from Study
  Country: CL (occurrence: CL)
  Receive Date: 20210915
  Receipt Date: 20211227
  Transmission Date: 20220304
  Serious: Yes (Other)
  Sender: FDA-Public Use
  Company Number: NVSC2021CL206499

PATIENT
  Sex: Female

DRUGS (4)
  1. PIQRAY [Suspect]
     Active Substance: ALPELISIB
     Indication: Breast cancer
     Dosage: 300 MG, QD (2 TABLETS OF 150 MG, (IN THE TIME OF THE LUNCH, WHILE SHE WAS EATING)
     Route: 048
     Dates: start: 20210907
  2. ZOMETA [Suspect]
     Active Substance: ZOLEDRONIC ACID
     Indication: Bone disorder
     Dosage: UNKNOWN
     Route: 065
  3. FULVESTRANT [Suspect]
     Active Substance: FULVESTRANT
     Indication: Breast cancer
     Dosage: 250 ML (AMPOULE, 250 MG-5 ML)
     Route: 030
     Dates: start: 20210907
  4. FASLODEX [Suspect]
     Active Substance: FULVESTRANT
     Indication: Product used for unknown indication
     Dosage: UNK
     Route: 065

REACTIONS (18)
  - Musculoskeletal chest pain [Unknown]
  - Paralysis [Unknown]
  - Pain [Unknown]
  - Crying [Unknown]
  - Bone cancer [Unknown]
  - Second primary malignancy [Unknown]
  - Hepatic steatosis [Unknown]
  - Somnolence [Unknown]
  - Cancer fatigue [Unknown]
  - Memory impairment [Unknown]
  - Illness [Unknown]
  - Movement disorder [Unknown]
  - Confusional state [Unknown]
  - Condition aggravated [Unknown]
  - Pruritus [Unknown]
  - Dry skin [Unknown]
  - Erythema [Unknown]
  - Drug ineffective [Unknown]
